FAERS Safety Report 5413559-2 (Version None)
Quarter: 2007Q3

REPORT INFORMATION
  Report Type: 
  Country: None (occurrence: None)
  Receive Date: 20070814
  Receipt Date: 20070809
  Transmission Date: 20080115
  Serious: Yes (Other)
  Sender: FDA-Public Use
  Company Number: DE-BRISTOL-MYERS SQUIBB COMPANY-13869664

PATIENT
  Age: 38 Year
  Sex: Male
  Weight: 80 kg

DRUGS (6)
  1. REYATAZ [Suspect]
     Indication: HIV INFECTION
     Dates: start: 20040920, end: 20050726
  2. RITONAVIR [Concomitant]
     Indication: HIV INFECTION
     Route: 048
     Dates: end: 20050726
  3. TRUVADA [Concomitant]
     Indication: HIV INFECTION
     Route: 048
     Dates: end: 20050726
  4. VIDEX [Concomitant]
  5. EPIVIR [Concomitant]
  6. SUSTIVA [Concomitant]

REACTIONS (2)
  - CD4 LYMPHOCYTES DECREASED [None]
  - ZIEVE SYNDROME [None]
